FAERS Safety Report 24840324 (Version 1)
Quarter: 2025Q1

REPORT INFORMATION
  Report Type: Report from Study
  Country: US (occurrence: US)
  Receive Date: 20250114
  Receipt Date: 20250114
  Transmission Date: 20250409
  Serious: Yes (Hospitalization, Other)
  Sender: ABBVIE
  Company Number: US-ABBVIE-6072582

PATIENT
  Age: 73 Year
  Sex: Male
  Weight: 55 kg

DRUGS (27)
  1. CREON [Suspect]
     Active Substance: PANCRELIPASE AMYLASE\PANCRELIPASE LIPASE\PANCRELIPASE PROTEASE
     Indication: Pancreatic failure
     Route: 048
     Dates: start: 20191220
  2. ZOFRAN [Concomitant]
     Active Substance: ONDANSETRON HYDROCHLORIDE
     Indication: Nausea
  3. LIDOCAINE [Concomitant]
     Active Substance: LIDOCAINE
     Indication: Pain
  4. LIPITOR [Concomitant]
     Active Substance: ATORVASTATIN CALCIUM
     Indication: Hyperlipidaemia
  5. BUSPAR [Concomitant]
     Active Substance: BUSPIRONE HYDROCHLORIDE
     Indication: Anxiety
  6. COREG [Concomitant]
     Active Substance: CARVEDILOL
     Indication: Hypertension
  7. GLUCAGON [Concomitant]
     Active Substance: GLUCAGON
     Indication: Blood glucose decreased
  8. PROSCAR [Concomitant]
     Active Substance: FINASTERIDE
     Indication: Benign prostatic hyperplasia
  9. VITAMIN D3 [Concomitant]
     Active Substance: CHOLECALCIFEROL
     Indication: Blood magnesium decreased
  10. COMPAZINE [Concomitant]
     Active Substance: PROCHLORPERAZINE MALEATE
     Indication: Nausea
  11. PROTONIX [Concomitant]
     Active Substance: PANTOPRAZOLE SODIUM
     Indication: Dyspepsia
  12. GABAPENTIN [Concomitant]
     Active Substance: GABAPENTIN
     Indication: Neuralgia
  13. HUMALOG [Concomitant]
     Active Substance: INSULIN LISPRO
     Indication: Diabetes mellitus
  14. NORCO [Concomitant]
     Active Substance: ACETAMINOPHEN\HYDROCODONE BITARTRATE
     Indication: Pain
  15. FLEXERIL [Concomitant]
     Active Substance: CYCLOBENZAPRINE HYDROCHLORIDE
     Indication: Muscle spasms
  16. LOMOTIL [Concomitant]
     Active Substance: ATROPINE SULFATE\DIPHENOXYLATE HYDROCHLORIDE
     Indication: Diarrhoea
  17. CLARITIN [Concomitant]
     Active Substance: LORATADINE
     Indication: Hypersensitivity
  18. TYLENOL [Concomitant]
     Active Substance: ACETAMINOPHEN
     Indication: Pain
  19. MELATONIN [Concomitant]
     Active Substance: MELATONIN
     Indication: Sleep disorder
  20. ELIQUIS [Concomitant]
     Active Substance: APIXABAN
     Indication: Deep vein thrombosis
  21. TAXOL [Concomitant]
     Active Substance: PACLITAXEL
     Indication: Depression
  22. ATIVAN [Concomitant]
     Active Substance: LORAZEPAM
     Indication: Insomnia
  23. ATARAX [Concomitant]
     Active Substance: HYDROXYZINE HYDROCHLORIDE
     Indication: Pruritus
  24. ASPIRIN [Concomitant]
     Active Substance: ASPIRIN
     Indication: Myocardial infarction
  25. MARINOL [Concomitant]
     Active Substance: DRONABINOL
     Indication: Decreased appetite
  26. LANTUS [Concomitant]
     Active Substance: INSULIN GLARGINE
     Indication: Blood insulin
  27. XALATAN [Concomitant]
     Active Substance: LATANOPROST
     Indication: Glaucoma

REACTIONS (17)
  - Pancreatic carcinoma recurrent [Not Recovered/Not Resolved]
  - Weight decreased [Recovering/Resolving]
  - Diarrhoea [Recovered/Resolved]
  - Back pain [Recovered/Resolved]
  - Diabetes mellitus [Recovering/Resolving]
  - Pain in extremity [Recovered/Resolved]
  - Clostridium difficile infection [Recovering/Resolving]
  - Encephalopathy [Recovered/Resolved]
  - Thrombosis [Recovered/Resolved]
  - Back pain [Recovered/Resolved]
  - Oxygen saturation abnormal [Recovered/Resolved]
  - Unresponsive to stimuli [Recovered/Resolved]
  - Nausea [Recovered/Resolved]
  - Urinary tract infection [Recovered/Resolved]
  - Sarcoma [Recovered/Resolved]
  - Abdominal pain [Recovered/Resolved]
  - Clostridium difficile infection [Recovered/Resolved]

NARRATIVE: CASE EVENT DATE: 20210101
